FAERS Safety Report 10700785 (Version 2)
Quarter: 2015Q1

REPORT INFORMATION
  Report Type: Report from Study
  Country: US (occurrence: US)
  Receive Date: 20150109
  Receipt Date: 20150319
  Transmission Date: 20150721
  Serious: Yes (Death, Other)
  Sender: FDA-Public Use
  Company Number: PHEH2014US026211

PATIENT
  Age: 77 Year
  Sex: Female

DRUGS (2)
  1. EXJADE [Suspect]
     Active Substance: DEFERASIROX
     Indication: MYELODYSPLASTIC SYNDROME
     Dosage: 250 MG, BID
     Route: 048
  2. EXJADE [Suspect]
     Active Substance: DEFERASIROX
     Indication: IRON METABOLISM DISORDER
     Dosage: 250 MG, QD
     Route: 048

REACTIONS (14)
  - Actinic keratosis [Unknown]
  - Fibula fracture [Unknown]
  - Ankle fracture [Unknown]
  - Osteopenia [Unknown]
  - Squamous cell carcinoma [Unknown]
  - Myeloproliferative disorder [Unknown]
  - Seborrhoeic keratosis [Unknown]
  - Death [Fatal]
  - Hyperlipidaemia [Unknown]
  - Foot deformity [Unknown]
  - Anaemia [Unknown]
  - Tibia fracture [Unknown]
  - Gastrooesophageal reflux disease [Unknown]
  - Thrombocytosis [Unknown]

NARRATIVE: CASE EVENT DATE: 201303
